FAERS Safety Report 6819119-0 (Version None)
Quarter: 2010Q3

REPORT INFORMATION
  Report Type: 
  Country: None (occurrence: None)
  Receive Date: 20100701
  Receipt Date: 20100621
  Transmission Date: 20110219
  Serious: Yes (Other)
  Sender: FDA-Public Use
  Company Number: 7008681

PATIENT
  Age: 46 Year
  Sex: Male

DRUGS (2)
  1. REBIF [Suspect]
     Indication: PRODUCT USED FOR UNKNOWN INDICATION
     Dosage: 44 MCG, 3 IN 1 WK, SUBCUTANEOUS
     Route: 058
     Dates: start: 20090717
  2. PERCOCET [Concomitant]

REACTIONS (4)
  - DISORIENTATION [None]
  - FATIGUE [None]
  - INJECTION SITE HAEMATOMA [None]
  - SENSATION OF HEAVINESS [None]
